FAERS Safety Report 7284459-0 (Version None)
Quarter: 2011Q1

REPORT INFORMATION
  Report Type: 
  Country: None (occurrence: None)
  Receive Date: 20110209
  Receipt Date: 20110204
  Transmission Date: 20110831
  Serious: Yes (Hospitalization)
  Sender: FDA-Public Use
  Company Number: ES-PFIZER INC-2011021321

PATIENT
  Age: 77 Year
  Sex: Female

DRUGS (5)
  1. TACROLIMUS [Concomitant]
     Dosage: AS NEEDED
     Dates: start: 20100830
  2. MYCOPHENOLIC ACID [Concomitant]
     Dosage: 360 MG, 1X/DAY
     Dates: start: 20100820
  3. INSULIN [Concomitant]
     Dosage: AS NEEDED
     Dates: start: 20100821
  4. SIROLIMUS [Suspect]
     Dosage: 3 MG, 1X/DAY
     Route: 048
     Dates: start: 20110121, end: 20110202
  5. PREDNISONE [Concomitant]
     Dosage: 5 MG, 1X/DAY
     Dates: start: 20100822

REACTIONS (1)
  - INFLUENZA [None]
